FAERS Safety Report 12257033 (Version 1)
Quarter: 2016Q2

REPORT INFORMATION
  Report Type: Spontaneous
  Country: FR (occurrence: FR)
  Receive Date: 20160412
  Receipt Date: 20160412
  Transmission Date: 20160815
  Serious: Yes (Life-Threatening, Hospitalization)
  Sender: FDA-Public Use
  Company Number: FR-PFIZER INC-2016186888

PATIENT
  Age: 54 Year
  Sex: Male

DRUGS (14)
  1. COOLMETEC [Suspect]
     Active Substance: HYDROCHLOROTHIAZIDE\OLMESARTAN MEDOXOMIL
     Dosage: UNK
  2. COTAREG [Suspect]
     Active Substance: HYDROCHLOROTHIAZIDE\VALSARTAN
     Indication: HYPERTENSION
     Dosage: 1 DF, DAILY (160/25 MG)
     Route: 048
     Dates: start: 20151201, end: 20151212
  3. ALDACTONE [Suspect]
     Active Substance: SPIRONOLACTONE
     Indication: HYPERTENSION
     Dosage: 25 MG, 1X/DAY
     Dates: start: 20151201, end: 20151212
  4. ASPEGIC [Concomitant]
     Active Substance: ASPIRIN DL-LYSINE
     Dosage: 100 MG, DAILY
     Dates: end: 201512
  5. AUGMENTIN [Concomitant]
     Active Substance: AMOXICILLIN\CLAVULANATE POTASSIUM
     Dosage: UNK
     Dates: end: 201512
  6. NOVOMIX [Concomitant]
     Active Substance: INSULIN ASPART
     Dosage: 22-0-18 IU DAILY
  7. CORGARD [Suspect]
     Active Substance: NADOLOL
     Dosage: 80 MG, 2X/DAY
     Route: 048
     Dates: end: 201512
  8. DIPROSONE [Concomitant]
     Active Substance: BETAMETHASONE DIPROPIONATE
     Dosage: UNK, AS NEEDED
     Dates: end: 201512
  9. GLUCOPHAGE [Concomitant]
     Active Substance: METFORMIN HYDROCHLORIDE
     Dosage: 1000 MG, 3X/DAY
     Dates: end: 201512
  10. COOLMETEC [Suspect]
     Active Substance: HYDROCHLOROTHIAZIDE\OLMESARTAN MEDOXOMIL
     Indication: HYPERTENSION
     Dosage: 1 DF, DAILY(40MG/125MG QD)
     Route: 048
     Dates: end: 20151201
  11. ISOPTINE SR [Suspect]
     Active Substance: VERAPAMIL HYDROCHLORIDE
     Dosage: 240 MG, 2 DF DAILY
     Route: 048
     Dates: end: 201512
  12. INEXIUM /01479302/ [Concomitant]
     Active Substance: ESOMEPRAZOLE MAGNESIUM
     Dosage: 20 MG, DAILY
     Dates: end: 201512
  13. XATRAL [Concomitant]
     Active Substance: ALFUZOSIN
     Dosage: 10 MG, UNK
     Dates: end: 201512
  14. DOLIPRANE [Concomitant]
     Active Substance: ACETAMINOPHEN
     Dosage: 1 G, 4X/DAY (AS NEEDED)
     Dates: end: 201512

REACTIONS (5)
  - Cardiogenic shock [Recovered/Resolved]
  - Abdominal pain upper [Unknown]
  - Bradycardia [Recovered/Resolved]
  - Hyperkalaemia [Unknown]
  - Cardio-respiratory arrest [Recovered/Resolved]

NARRATIVE: CASE EVENT DATE: 20151212
